FAERS Safety Report 8312024-2 (Version None)
Quarter: 2012Q2

REPORT INFORMATION
  Report Type: 
  Country: None (occurrence: None)
  Receive Date: 20120425
  Receipt Date: 20120412
  Transmission Date: 20120825
  Serious: Yes (Hospitalization, Other)
  Sender: FDA-Public Use
  Company Number: US-ELI_LILLY_AND_COMPANY-US201204004909

PATIENT
  Age: 71 Year
  Sex: Female

DRUGS (4)
  1. VALIUM [Concomitant]
     Dosage: UNK, OTHER
  2. CYMBALTA [Suspect]
     Dosage: 60 MG, UNKNOWN
  3. CYMBALTA [Suspect]
     Indication: DEPRESSION
     Dosage: 30 MG, UNKNOWN
  4. ELAVIL [Concomitant]

REACTIONS (1)
  - PSYCHOTIC DISORDER [None]
